FAERS Safety Report 13129107 (Version 1)
Quarter: 2017Q1

REPORT INFORMATION
  Report Type: Spontaneous
  Country: US (occurrence: US)
  Receive Date: 20170118
  Receipt Date: 20170118
  Transmission Date: 20170428
  Serious: Yes (Hospitalization)
  Sender: FDA-Public Use
  Company Number: None

PATIENT
  Age: 77 Year
  Sex: Female
  Weight: 48.08 kg

DRUGS (10)
  1. CALCIUM + VITAMIN D3 [Concomitant]
     Active Substance: CALCIUM\CHOLECALCIFEROL
  2. ACEBUTOLOL [Concomitant]
     Active Substance: ACEBUTOLOL
  3. LIPITOR [Concomitant]
     Active Substance: ATORVASTATIN CALCIUM
  4. LIDOCAINE. [Suspect]
     Active Substance: LIDOCAINE
     Indication: PROPHYLAXIS
     Dates: start: 1999
  5. ZETIA [Concomitant]
     Active Substance: EZETIMIBE
  6. CENTRUM SILVER [Concomitant]
     Active Substance: MINERALS\VITAMINS
  7. VITAMIN C [Concomitant]
     Active Substance: ASCORBIC ACID
  8. LIDOCAINE. [Suspect]
     Active Substance: LIDOCAINE
     Indication: INJECTION SITE PAIN
     Dates: start: 1999
  9. ASPIRIN. [Concomitant]
     Active Substance: ASPIRIN
  10. TRIAMTERENE AND HYDROCHLOROTHIAZIDE [Concomitant]
     Active Substance: HYDROCHLOROTHIAZIDE\TRIAMTERENE

REACTIONS (6)
  - Asthenia [None]
  - Vocal cord paralysis [None]
  - Blood pressure inadequately controlled [None]
  - Drug hypersensitivity [None]
  - Paralysis [None]
  - Dysarthria [None]

NARRATIVE: CASE EVENT DATE: 1999
